FAERS Safety Report 4602109-6 (Version None)
Quarter: 2005Q2

REPORT INFORMATION
  Report Type: 
  Country: None (occurrence: None)
  Receive Date: 20050215
  Receipt Date: 20040607
  Transmission Date: 20051028
  Serious: Yes (Other)
  Sender: FDA-Public Use
  Company Number: MC200400065

PATIENT
  Sex: Female

DRUGS (3)
  1. ANGIOMAX [Suspect]
     Indication: ANTICOAGULANT THERAPY
     Dosage: 0.75 MG.KG, BOLUS, IV BOLUS
     Route: 040
     Dates: start: 20040501, end: 20040501
  2. ANGIOMAX [Suspect]
     Indication: CORONARY ANGIOPLASTY
     Dosage: 0.75 MG.KG, BOLUS, IV BOLUS
     Route: 040
     Dates: start: 20040501, end: 20040501
  3. ANGIOMAX [Suspect]
     Dosage: 1.75 MG/KG, HR INF, IV HR INF, INTRAVENOUS
     Route: 042

REACTIONS (2)
  - PAIN [None]
  - RETROPERITONEAL HAEMORRHAGE [None]
